FAERS Safety Report 5538264-3 (Version None)
Quarter: 2007Q4

REPORT INFORMATION
  Report Type: 
  Country: None (occurrence: None)
  Receive Date: 20071204
  Receipt Date: 20070911
  Transmission Date: 20080405
  Serious: Yes (Hospitalization, Disabling)
  Sender: FDA-Public Use
  Company Number: 2007S1009371

PATIENT
  Age: 75 Year
  Sex: Female

DRUGS (5)
  1. CIPROFLOXACIN [Suspect]
     Dosage: 750 MG; TWICEA A DAY, ORAL
     Route: 048
     Dates: start: 20070720, end: 20070720
  2. CARBOCYSTEINE             (CARBOCISTEINE) [Concomitant]
  3. SALBUTAMOL (SALBUTAMOL) [Concomitant]
  4. SERETIDE               (SERETIDE) [Concomitant]
  5. SPIRIVA [Concomitant]

REACTIONS (6)
  - CHEST PAIN [None]
  - CONFUSIONAL STATE [None]
  - DYSPNOEA [None]
  - HEADACHE [None]
  - PYREXIA [None]
  - SINUS TACHYCARDIA [None]
